FAERS Safety Report 25611217 (Version 1)
Quarter: 2025Q3

REPORT INFORMATION
  Report Type: Spontaneous
  Country: US (occurrence: US)
  Receive Date: 20250728
  Receipt Date: 20250728
  Transmission Date: 20251020
  Serious: No
  Sender: SAREPTA THERAPEUTICS
  Company Number: US-SAREPTA THERAPEUTICS INC.-SRP2025-006227

PATIENT
  Sex: Male
  Weight: 19.37 kg

DRUGS (5)
  1. AMONDYS 45 [Suspect]
     Active Substance: CASIMERSEN
     Indication: Duchenne muscular dystrophy
     Route: 042
     Dates: start: 20250606
  2. HYDROCORTISONE [Concomitant]
     Active Substance: HYDROCORTISONE
     Indication: Product used for unknown indication
     Route: 048
     Dates: start: 20250602
  3. Cholescalcifrerol 25 mcg / 0.03 ml [Concomitant]
     Indication: Product used for unknown indication
     Route: 048
  4. CHILDRENS CHEWABLE VITAMINS [Concomitant]
     Indication: Product used for unknown indication
     Route: 048
     Dates: start: 20250602
  5. Agamree Oral Suspension 40 mg/ml [Concomitant]
     Indication: Product used for unknown indication
     Dosage: 90 MILLIGRAMS
     Route: 048
     Dates: start: 20250602

REACTIONS (2)
  - Intentional dose omission [Unknown]
  - No adverse event [Unknown]
